FAERS Safety Report 17489455 (Version 1)
Quarter: 2020Q1

REPORT INFORMATION
  Report Type: Spontaneous
  Country: GB (occurrence: GB)
  Receive Date: 20200303
  Receipt Date: 20200303
  Transmission Date: 20200409
  Serious: Yes (Death)
  Sender: FDA-Public Use
  Company Number: GB-HQ SPECIALTY-GB-2020INT000017

PATIENT
  Sex: Male

DRUGS (13)
  1. G-CSF [Concomitant]
     Active Substance: GRANULOCYTE COLONY-STIMULATING FACTOR NOS
     Indication: PROPHYLAXIS
     Dosage: UNK, WEEKS 5 OF CBOP/BEP AND DURING 7-15 WEEK BEP CYCLE
     Route: 065
  2. CISPLATIN. [Suspect]
     Active Substance: CISPLATIN
     Dosage: 40 MG/M2, WEEKS 2 AND 4
     Route: 065
  3. BLEOMYCIN [Suspect]
     Active Substance: BLEOMYCIN SULFATE
     Dosage: 15000 IU, 24-H IV INFUSION ON DAYS 1-5 (TOTAL DOSE 75000IU), AT WEEKS 2 AND 4
     Route: 042
  4. BLEOMYCIN [Suspect]
     Active Substance: BLEOMYCIN SULFATE
     Dosage: 15000 IU, 3 CYCLES, WEEKLY, AT WEEKS 7-15
     Route: 065
  5. ETOPOSIDE. [Suspect]
     Active Substance: ETOPOSIDE
     Indication: GERM CELL CANCER
     Dosage: 100 MG/M2, 4 CYCLES, ON DAYS 1-5 OF EACH CYCLE, AT WEEKS 7-15
     Route: 065
  6. CISPLATIN. [Suspect]
     Active Substance: CISPLATIN
     Indication: GERM CELL CANCER
     Dosage: 50 MG/M2, WEEKS 1 AND 3, DAYS 1 AND 2
     Route: 065
  7. VINCRISTINE [Suspect]
     Active Substance: VINCRISTINE
     Indication: GERM CELL CANCER
     Dosage: 2 MG, DAY 1 AT WEEKS 1 AND 3
     Route: 065
  8. VINCRISTINE [Suspect]
     Active Substance: VINCRISTINE
     Dosage: 2 MG, AT WEEKS 5 AND 6, ON DAY 1
     Route: 065
  9. BLEOMYCIN [Suspect]
     Active Substance: BLEOMYCIN SULFATE
     Indication: GERM CELL CANCER
     Dosage: 15000 IU, DAY 1, AT WEEKS 1 AND 3
     Route: 065
  10. CISPLATIN. [Suspect]
     Active Substance: CISPLATIN
     Dosage: 20 MG/M2, 4 CYCLES, DAYS 1-5 OF EACH CYCLES, DURING WEEKS 7-15
     Route: 065
  11. CARBOPLATIN. [Suspect]
     Active Substance: CARBOPLATIN
     Indication: GERM CELL CANCER
     Dosage: AUC3 ALL ON DAY 1, AT WEEKS 2 AND 4
     Route: 065
  12. BLEOMYCIN [Suspect]
     Active Substance: BLEOMYCIN SULFATE
     Dosage: 15000 IU, ON DAY 1, AT WEEKS 5 AND 6
     Route: 065
  13. VINCRISTINE [Suspect]
     Active Substance: VINCRISTINE
     Dosage: 2 MG, AT WEEKS 2 AND 4, ON DAY 1
     Route: 065

REACTIONS (1)
  - Death [Fatal]
